FAERS Safety Report 15168432 (Version 1)
Quarter: 2018Q3

REPORT INFORMATION
  Report Type: Report from Study
  Country: None (occurrence: BR)
  Receive Date: 20180719
  Receipt Date: 20180719
  Transmission Date: 20181010
  Serious: Yes (Hospitalization)
  Sender: FDA-Public Use
  Company Number: BR-ABBVIE-18P-020-2417304-00

PATIENT
  Age: 79 Year
  Sex: Male
  Weight: 54 kg

DRUGS (26)
  1. SULFAMETHOXAZOLE AND TRIMETHOPRIM [Concomitant]
     Active Substance: SULFAMETHOXAZOLE\TRIMETHOPRIM
     Indication: ANTIBIOTIC PROPHYLAXIS
     Dosage: 400/80MG BID 3X WEEKS
     Route: 048
     Dates: start: 20180219, end: 20180221
  2. ASPIRIN. [Concomitant]
     Active Substance: ASPIRIN
     Indication: ISCHAEMIC HEART DISEASE PROPHYLAXIS
     Route: 048
     Dates: start: 2007
  3. MEROPENEM. [Concomitant]
     Active Substance: MEROPENEM
     Indication: FEBRILE NEUTROPENIA
     Route: 042
     Dates: start: 20180407
  4. AZACITIDINE. [Suspect]
     Active Substance: AZACITIDINE
     Indication: ACUTE MYELOID LEUKAEMIA
     Dosage: DAYS 1?7 OF 28 DAYS CYCLE
     Route: 058
     Dates: start: 20180307
  5. VORICONAZOLE. [Concomitant]
     Active Substance: VORICONAZOLE
     Route: 042
     Dates: start: 20180410, end: 20180419
  6. VENETOCLAX. [Suspect]
     Active Substance: VENETOCLAX
     Route: 048
     Dates: start: 20180309, end: 20180402
  7. ZOLPIDEM [Concomitant]
     Active Substance: ZOLPIDEM\ZOLPIDEM TARTRATE
     Indication: INSOMNIA
     Dosage: 5 TO 10 MG PER AS NECESSARY
     Route: 048
     Dates: start: 2017
  8. IPRATROPIUM [Concomitant]
     Active Substance: IPRATROPIUM
     Dosage: 30GTT
     Route: 055
     Dates: start: 20180310, end: 20180313
  9. CALCIUM CARBONATE. [Concomitant]
     Active Substance: CALCIUM CARBONATE
     Indication: HYPOCALCAEMIA
     Route: 048
     Dates: start: 20180329
  10. VENETOCLAX. [Suspect]
     Active Substance: VENETOCLAX
     Route: 048
     Dates: start: 20180308, end: 20180308
  11. SALBUTAMOL [Concomitant]
     Active Substance: ALBUTEROL
     Route: 055
     Dates: start: 20180221, end: 20180221
  12. BROMOPRIDA [Concomitant]
     Indication: PROPHYLAXIS OF NAUSEA AND VOMITING
     Route: 042
     Dates: start: 20180309
  13. SULFAMETHOXAZOLE AND TRIMETHOPRIM [Concomitant]
     Active Substance: SULFAMETHOXAZOLE\TRIMETHOPRIM
     Dosage: 400/80MG
     Route: 048
     Dates: start: 20180305
  14. VORICONAZOLE. [Concomitant]
     Active Substance: VORICONAZOLE
     Route: 048
     Dates: start: 20180404, end: 20180409
  15. VENETOCLAX. [Suspect]
     Active Substance: VENETOCLAX
     Indication: ACUTE MYELOID LEUKAEMIA
     Route: 048
     Dates: start: 20180307, end: 20180307
  16. IPRATROPIUM [Concomitant]
     Active Substance: IPRATROPIUM
     Indication: DYSPNOEA
     Route: 055
     Dates: start: 20180221
  17. ISOSORBIDE. [Concomitant]
     Active Substance: ISOSORBIDE
     Route: 048
     Dates: start: 20180310
  18. SALBUTAMOL [Concomitant]
     Active Substance: ALBUTEROL
     Indication: DYSPNOEA
     Route: 055
     Dates: start: 20180307
  19. VANCOMICINA [Concomitant]
     Active Substance: VANCOMYCIN
     Indication: FEBRILE NEUTROPENIA
     Route: 042
     Dates: start: 20180307
  20. ISOSORBIDE. [Concomitant]
     Active Substance: ISOSORBIDE
     Indication: ANGINA UNSTABLE
     Route: 060
     Dates: start: 20180309, end: 20180309
  21. VORICONAZOLE. [Concomitant]
     Active Substance: VORICONAZOLE
     Indication: SYSTEMIC MYCOSIS
     Route: 048
     Dates: start: 20180402, end: 20180403
  22. VITAMIN D3 [Concomitant]
     Active Substance: CHOLECALCIFEROL
     Indication: HYPOPHOSPHATAEMIA
     Route: 048
     Dates: start: 20180402
  23. VENETOCLAX. [Suspect]
     Active Substance: VENETOCLAX
     Route: 048
     Dates: start: 20180430
  24. CRESTOR [Concomitant]
     Active Substance: ROSUVASTATIN CALCIUM
     Indication: HYPERLIPIDAEMIA
     Dates: start: 2017
  25. VORICONAZOLE. [Concomitant]
     Active Substance: VORICONAZOLE
     Route: 048
     Dates: start: 20180420
  26. DIPHENHYDRAMINE HYDROCHLORIDE. [Concomitant]
     Active Substance: DIPHENHYDRAMINE HYDROCHLORIDE
     Indication: RASH MACULO-PAPULAR
     Route: 042
     Dates: start: 20180310

REACTIONS (1)
  - Epistaxis [Recovered/Resolved]

NARRATIVE: CASE EVENT DATE: 20180710
